FAERS Safety Report 4530809-5 (Version None)
Quarter: 2004Q4

REPORT INFORMATION
  Report Type: 
  Country: None (occurrence: None)
  Receive Date: 20041216
  Receipt Date: 20041130
  Transmission Date: 20050328
  Serious: Yes (Hospitalization)
  Sender: FDA-Public Use
  Company Number: EWC041041041

PATIENT
  Age: 55 Year
  Sex: Male

DRUGS (6)
  1. FORTEO [Suspect]
     Indication: FRACTURE
     Dosage: 20 UG DAY
     Dates: start: 20040201, end: 20041025
  2. FORTEO [Suspect]
     Indication: OSTEOPOROSIS
     Dosage: 20 UG DAY
     Dates: start: 20040201, end: 20041025
  3. SIRALUD (TIZANIDINE HYDROCHLORIDE) [Concomitant]
  4. MAGNONORM-GENERICON (MAGNESIUM) [Concomitant]
  5. LEXOTANIL (BROMAZEPAM) [Concomitant]
  6. MORPHINE [Concomitant]

REACTIONS (6)
  - HYPERHIDROSIS [None]
  - IMPLANT SITE INFECTION [None]
  - MEDICAL DEVICE COMPLICATION [None]
  - MUSCLE CRAMP [None]
  - NERVOUSNESS [None]
  - PYREXIA [None]
